FAERS Safety Report 8081461-6 (Version None)
Quarter: 2012Q1

REPORT INFORMATION
  Report Type: 
  Country: None (occurrence: None)
  Receive Date: 20120130
  Receipt Date: 20120124
  Transmission Date: 20120608
  Serious: Yes (Other)
  Sender: FDA-Public Use
  Company Number: CA-PFIZER INC-2012004591

PATIENT
  Sex: Female

DRUGS (7)
  1. INSULIN [Concomitant]
     Dosage: UNK
  2. LIPITOR [Concomitant]
     Dosage: 20 MG, UNK
  3. INDAPAMIDE [Concomitant]
     Dosage: 2.5 MG, UNK
  4. LYRICA [Suspect]
     Indication: DIABETIC NEUROPATHY
     Dosage: 75 MG, 2X/DAY
     Route: 048
     Dates: start: 20070101, end: 20080601
  5. BISOPROLOL [Concomitant]
     Dosage: 10 MG, UNK
  6. METFORMIN [Concomitant]
     Dosage: 500 MG, 2X/DAY
     Route: 048
  7. EZETIMIBE [Concomitant]
     Dosage: 10 MG, UNK

REACTIONS (2)
  - BLOOD CREATININE INCREASED [None]
  - GLOMERULAR FILTRATION RATE DECREASED [None]
